FAERS Safety Report 9073312 (Version 1)
Quarter: 2013Q1

REPORT INFORMATION
  Report Type: Report from Study
  Country: US (occurrence: US)
  Receive Date: 20130128
  Receipt Date: 20130128
  Transmission Date: 20140127
  Serious: No
  Sender: FDA-Public Use
  Company Number: US-ABBOTT-12P-163-0904379-00

PATIENT
  Age: 62 None
  Sex: Female
  Weight: 90.8 kg

DRUGS (2)
  1. HUMIRA 40 MG/0.8 ML PEN [Suspect]
     Indication: RHEUMATOID ARTHRITIS
     Route: 058
     Dates: start: 201104, end: 20120110
  2. HUMIRA 40 MG/0.8 ML PEN [Suspect]
     Route: 058
     Dates: start: 20120210

REACTIONS (3)
  - Herpes zoster [Recovered/Resolved]
  - Lichen planus [Recovering/Resolving]
  - Systemic lupus erythematosus [Unknown]
